FAERS Safety Report 9753149 (Version 2)
Quarter: 2013Q4

REPORT INFORMATION
  Report Type: Spontaneous
  Country: US (occurrence: US)
  Receive Date: 20131213
  Receipt Date: 20131213
  Transmission Date: 20140711
  Serious: No
  Sender: FDA-Public Use
  Company Number: US-GILEAD-2010-0026300

PATIENT
  Age: 70 Year
  Sex: Female

DRUGS (6)
  1. LETAIRIS [Suspect]
     Indication: PULMONARY ARTERIAL HYPERTENSION
     Route: 048
     Dates: start: 20090218
  2. COZAAR [Concomitant]
  3. METOPROLOL TAR [Concomitant]
  4. ASA [Concomitant]
  5. RENAL CAP SOFTGEL [Concomitant]
  6. RENAGEL [Concomitant]

REACTIONS (4)
  - Dizziness [Unknown]
  - Hypotension [Unknown]
  - Balance disorder [Unknown]
  - Nausea [Unknown]
